FAERS Safety Report 7744607-2 (Version None)
Quarter: 2011Q3

REPORT INFORMATION
  Report Type: 
  Country: None (occurrence: None)
  Receive Date: 20110912
  Receipt Date: 20110909
  Transmission Date: 20111222
  Serious: Yes (Other)
  Sender: FDA-Public Use
  Company Number: US-PFIZER INC-2011212752

PATIENT
  Sex: Male

DRUGS (1)
  1. XANAX [Suspect]
     Dosage: UNK

REACTIONS (13)
  - MENTAL DISORDER [None]
  - FLATULENCE [None]
  - ERUCTATION [None]
  - FREQUENT BOWEL MOVEMENTS [None]
  - HEADACHE [None]
  - POLLAKIURIA [None]
  - ANXIETY [None]
  - HYPOKINESIA [None]
  - ACTIVITIES OF DAILY LIVING IMPAIRED [None]
  - SENSORY DISTURBANCE [None]
  - MUSCLE SPASMS [None]
  - FEELING ABNORMAL [None]
  - MALAISE [None]
